FAERS Safety Report 11695448 (Version 3)
Quarter: 2019Q1

REPORT INFORMATION
  Report Type: Report from Study
  Country: US (occurrence: US)
  Receive Date: 20151104
  Receipt Date: 20190225
  Transmission Date: 20190417
  Serious: Yes (Hospitalization)
  Sender: FDA-Public Use
  Company Number: US-ROCHE-1653873

PATIENT
  Age: 74 Year
  Sex: Male
  Weight: 113.27 kg

DRUGS (16)
  1. VEMURAFENIB. [Suspect]
     Active Substance: VEMURAFENIB
     Indication: THYROID CANCER METASTATIC
     Route: 048
     Dates: start: 20151008, end: 20151015
  2. LOVENOX [Concomitant]
     Active Substance: ENOXAPARIN SODIUM
  3. LEVOTHYROXINE. [Concomitant]
     Active Substance: LEVOTHYROXINE
  4. ZIRTEC [Concomitant]
     Active Substance: CETIRIZINE HYDROCHLORIDE
  5. ALEVE [Concomitant]
     Active Substance: NAPROXEN SODIUM
  6. IBUPROFEN. [Concomitant]
     Active Substance: IBUPROFEN
  7. TYLENOL [Concomitant]
     Active Substance: ACETAMINOPHEN
  8. CARDURA [Concomitant]
     Active Substance: DOXAZOSIN MESYLATE
  9. FUROSEMIDE. [Concomitant]
     Active Substance: FUROSEMIDE
  10. AVODART [Concomitant]
     Active Substance: DUTASTERIDE
  11. TAMSULOSIN [Concomitant]
     Active Substance: TAMSULOSIN
  12. HYDROCODONE BITARTRATE AND ACETAMINOPHEN [Concomitant]
     Active Substance: ACETAMINOPHEN\HYDROCODONE BITARTRATE
  13. SAW PALMETTO [Concomitant]
     Active Substance: HERBALS\SAW PALMETTO
  14. LEVAQUIN [Concomitant]
     Active Substance: LEVOFLOXACIN
  15. METOLAZONE. [Concomitant]
     Active Substance: METOLAZONE
  16. METOPROLOL SUCCINATE. [Concomitant]
     Active Substance: METOPROLOL SUCCINATE

REACTIONS (3)
  - Renal failure [Unknown]
  - Atrial fibrillation [Not Recovered/Not Resolved]
  - Cardiac failure [Unknown]

NARRATIVE: CASE EVENT DATE: 20151024
